FAERS Safety Report 8984506 (Version 3)
Quarter: 2013Q1

REPORT INFORMATION
  Report Type: Spontaneous
  Country: US (occurrence: US)
  Receive Date: 20121225
  Receipt Date: 20130204
  Transmission Date: 20140127
  Serious: Yes (Other)
  Sender: FDA-Public Use
  Company Number: US-SANOFI-AVENTIS-2012SA091007

PATIENT
  Sex: 0

DRUGS (1)
  1. ARAVA [Suspect]
     Route: 065

REACTIONS (3)
  - Renal disorder [Unknown]
  - Renal transplant [Unknown]
  - Drug administration error [Unknown]
